FAERS Safety Report 21604495 (Version 1)
Quarter: 2022Q4

REPORT INFORMATION
  Report Type: Spontaneous
  Country: US (occurrence: None)
  Receive Date: 20221116
  Receipt Date: 20221116
  Transmission Date: 20230112
  Serious: Yes (Other)
  Sender: FDA-Public Use
  Company Number: None

PATIENT
  Age: 52 Year
  Sex: Female
  Weight: 63.9 kg

DRUGS (27)
  1. XIIDRA [Suspect]
     Active Substance: LIFITEGRAST
     Indication: Dry eye
     Dosage: OTHER QUANTITY : 1 SINGLE-USE CONTAIN;?FREQUENCY : TWICE A DAY;?OTHER ROUTE : EYE DROP - 1 DROP PER
     Route: 050
     Dates: start: 20221116, end: 20221116
  2. RESTASIS [Concomitant]
     Active Substance: CYCLOSPORINE
  3. XIIDRA [Concomitant]
     Active Substance: LIFITEGRAST
  4. COSENTYX [Concomitant]
     Active Substance: SECUKINUMAB
  5. MESTINON [Concomitant]
     Active Substance: PYRIDOSTIGMINE BROMIDE
  6. KETOTIFEN [Concomitant]
     Active Substance: KETOTIFEN
  7. CROMOLYN SODIUM [Concomitant]
     Active Substance: CROMOLYN SODIUM
  8. XYZAL [Concomitant]
     Active Substance: LEVOCETIRIZINE DIHYDROCHLORIDE
  9. LOVAZA [Concomitant]
     Active Substance: OMEGA-3-ACID ETHYL ESTERS
  10. UBRELVY [Concomitant]
     Active Substance: UBROGEPANT
  11. NURTEC ODT [Concomitant]
     Active Substance: RIMEGEPANT SULFATE
  12. MONTELUKAST SODIUM [Concomitant]
     Active Substance: MONTELUKAST SODIUM
  13. eye rewetting drops [Concomitant]
  14. ALLEGRA [Concomitant]
     Active Substance: FEXOFENADINE HYDROCHLORIDE
  15. PEPCID [Concomitant]
     Active Substance: FAMOTIDINE
  16. ASPIRIN [Concomitant]
     Active Substance: ASPIRIN
  17. BENADRYL [Concomitant]
     Active Substance: DIPHENHYDRAMINE HYDROCHLORIDE
  18. ACETAMINOPHEN [Concomitant]
     Active Substance: ACETAMINOPHEN
  19. MELATONIN [Concomitant]
     Active Substance: MELATONIN
  20. CALCIUM CITRATE [Concomitant]
     Active Substance: CALCIUM CITRATE
  21. MAGNESIUM CITRATE [Concomitant]
     Active Substance: MAGNESIUM CITRATE
  22. VITAMIN D [Concomitant]
     Active Substance: VITAMIN D NOS
  23. VITAMIN B12 [Concomitant]
     Active Substance: CYANOCOBALAMIN
  24. VITAMIN B COMPLEX [Concomitant]
     Active Substance: CYANOCOBALAMIN\DEXPANTHENOL\NIACINAMIDE\PYRIDOXINE HYDROCHLORIDE\RIBOFLAVIN 5^-PHOSPHATE SODIUM\THIA
  25. Vitamin B-2 [Concomitant]
  26. VITAMIN C [Concomitant]
     Active Substance: ASCORBIC ACID
  27. DIETARY SUPPLEMENT\HERBALS\INDIAN FRANKINCENSE [Concomitant]
     Active Substance: DIETARY SUPPLEMENT\HERBALS\INDIAN FRANKINCENSE

REACTIONS (13)
  - Application site pain [None]
  - Eye irritation [None]
  - Dysgeusia [None]
  - Anaphylactic reaction [None]
  - Throat irritation [None]
  - Throat tightness [None]
  - Feeling abnormal [None]
  - Headache [None]
  - Flushing [None]
  - Oral discomfort [None]
  - Burning sensation [None]
  - Paraesthesia [None]
  - Paraesthesia oral [None]

NARRATIVE: CASE EVENT DATE: 20221116
